FAERS Safety Report 7374423-5 (Version None)
Quarter: 2011Q1

REPORT INFORMATION
  Report Type: 
  Country: None (occurrence: None)
  Receive Date: 20110325
  Receipt Date: 20110304
  Transmission Date: 20110831
  Serious: No
  Sender: FDA-Public Use
  Company Number: US-B.I. PHARMACEUTICALS,INC./RIDGEFIELD-2011-BP-06944BP

PATIENT
  Age: 80 Year
  Sex: Female

DRUGS (6)
  1. SINGULAIR [Concomitant]
     Indication: HYPERSENSITIVITY
  2. DIGOXIN [Concomitant]
     Indication: ATRIAL FIBRILLATION
  3. LIPITOR [Concomitant]
     Indication: BLOOD CHOLESTEROL INCREASED
  4. DILTIAZEM HCL [Concomitant]
     Indication: ATRIAL FIBRILLATION
  5. PRADAXA [Suspect]
     Indication: ATRIAL FIBRILLATION
     Dosage: 300 MG
     Route: 048
     Dates: start: 20110223
  6. METOPROLOL [Concomitant]
     Indication: HYPERTENSION
     Dosage: 50 MG

REACTIONS (7)
  - HEADACHE [None]
  - TREMOR [None]
  - ASTHENIA [None]
  - ABDOMINAL DISCOMFORT [None]
  - MUSCULOSKELETAL DISCOMFORT [None]
  - CHEST DISCOMFORT [None]
  - NAUSEA [None]
